FAERS Safety Report 12135186 (Version 1)
Quarter: 2016Q1

REPORT INFORMATION
  Report Type: Spontaneous
  Country: US (occurrence: US)
  Receive Date: 20160301
  Receipt Date: 20160301
  Transmission Date: 20160526
  Serious: No
  Sender: FDA-Public Use
  Company Number: US-BIOGEN-2016BI00194210

PATIENT
  Sex: Female

DRUGS (1)
  1. TYSABRI [Suspect]
     Active Substance: NATALIZUMAB
     Indication: MULTIPLE SCLEROSIS
     Dosage: UNKNOWN DOSE AND FREQUENCY
     Route: 042
     Dates: start: 20150706, end: 20150928

REACTIONS (2)
  - Gastrointestinal disorder [Unknown]
  - Gastric disorder [Unknown]
